FAERS Safety Report 17103171 (Version 1)
Quarter: 2019Q4

REPORT INFORMATION
  Report Type: Report from Study
  Country: CA (occurrence: CA)
  Receive Date: 20191203
  Receipt Date: 20191203
  Transmission Date: 20200122
  Serious: Yes (Hospitalization)
  Sender: FDA-Public Use
  Company Number: CA-ROCHE-2487026

PATIENT
  Age: 49 Year
  Sex: Male
  Weight: 53.4 kg

DRUGS (1)
  1. TENECTEPLASE [Suspect]
     Active Substance: TENECTEPLASE
     Indication: CEREBROVASCULAR ACCIDENT
     Route: 042
     Dates: start: 20191120

REACTIONS (1)
  - Stroke in evolution [Recovered/Resolved]

NARRATIVE: CASE EVENT DATE: 20191120
